FAERS Safety Report 20885097 (Version 2)
Quarter: 2022Q2

REPORT INFORMATION
  Report Type: Report from Study
  Country: JP (occurrence: JP)
  Receive Date: 20220527
  Receipt Date: 20220613
  Transmission Date: 20220721
  Serious: Yes (Other)
  Sender: FDA-Public Use
  Company Number: JP-PFIZER INC-202200753806

PATIENT
  Age: 37 Year
  Sex: Female

DRUGS (2)
  1. METHOTREXATE SODIUM [Suspect]
     Active Substance: METHOTREXATE SODIUM
     Indication: Ectopic pregnancy
     Dosage: 50 MG
  2. VASOPRESSIN [Concomitant]
     Active Substance: VASOPRESSIN
     Dosage: 3 U

REACTIONS (1)
  - Uterine rupture [Unknown]
